FAERS Safety Report 20377121 (Version 2)
Quarter: 2022Q1

REPORT INFORMATION
  Report Type: Report from Study
  Country: US (occurrence: US)
  Receive Date: 20220125
  Receipt Date: 20220228
  Transmission Date: 20220423
  Serious: Yes (Death, Hospitalization, Other)
  Sender: FDA-Public Use
  Company Number: US-TAKEDA-2021TUS052659

PATIENT
  Age: 77 Year
  Sex: Male

DRUGS (16)
  1. TEDUGLUTIDE [Suspect]
     Active Substance: TEDUGLUTIDE
     Indication: Short-bowel syndrome
     Dosage: 1.9 MILLIGRAM, QD
     Route: 058
     Dates: start: 20210722
  2. TEDUGLUTIDE [Suspect]
     Active Substance: TEDUGLUTIDE
     Indication: Short-bowel syndrome
     Dosage: 1.9 MILLIGRAM, QD
     Route: 058
     Dates: start: 20210722
  3. TEDUGLUTIDE [Suspect]
     Active Substance: TEDUGLUTIDE
     Indication: Short-bowel syndrome
     Dosage: 1.9 MILLIGRAM, QD
     Route: 058
     Dates: start: 20210722
  4. TEDUGLUTIDE [Suspect]
     Active Substance: TEDUGLUTIDE
     Indication: Short-bowel syndrome
     Dosage: 1.9 MILLIGRAM, QD
     Route: 058
     Dates: start: 20210722
  5. TEDUGLUTIDE [Suspect]
     Active Substance: TEDUGLUTIDE
     Indication: Rectal cancer
     Dosage: 1.9 MILLIGRAM, QD
     Route: 058
     Dates: start: 202107
  6. TEDUGLUTIDE [Suspect]
     Active Substance: TEDUGLUTIDE
     Indication: Rectal cancer
     Dosage: 1.9 MILLIGRAM, QD
     Route: 058
     Dates: start: 202107
  7. TEDUGLUTIDE [Suspect]
     Active Substance: TEDUGLUTIDE
     Indication: Rectal cancer
     Dosage: 1.9 MILLIGRAM, QD
     Route: 058
     Dates: start: 202107
  8. TEDUGLUTIDE [Suspect]
     Active Substance: TEDUGLUTIDE
     Indication: Rectal cancer
     Dosage: 1.9 MILLIGRAM, QD
     Route: 058
     Dates: start: 202107
  9. TEDUGLUTIDE [Suspect]
     Active Substance: TEDUGLUTIDE
     Indication: Enterostomy
     Dosage: 0.19 MILLILITER, QD
     Route: 058
     Dates: start: 20210723
  10. TEDUGLUTIDE [Suspect]
     Active Substance: TEDUGLUTIDE
     Indication: Enterostomy
     Dosage: 0.19 MILLILITER, QD
     Route: 058
     Dates: start: 20210723
  11. TEDUGLUTIDE [Suspect]
     Active Substance: TEDUGLUTIDE
     Indication: Enterostomy
     Dosage: 0.19 MILLILITER, QD
     Route: 058
     Dates: start: 20210723
  12. TEDUGLUTIDE [Suspect]
     Active Substance: TEDUGLUTIDE
     Indication: Enterostomy
     Dosage: 0.19 MILLILITER, QD
     Route: 058
     Dates: start: 20210723
  13. TEDUGLUTIDE [Suspect]
     Active Substance: TEDUGLUTIDE
     Dosage: 1.9 MILLIGRAM, QD
     Route: 058
     Dates: start: 20210723
  14. TEDUGLUTIDE [Suspect]
     Active Substance: TEDUGLUTIDE
     Dosage: 1.9 MILLIGRAM, QD
     Route: 058
     Dates: start: 20210723
  15. TEDUGLUTIDE [Suspect]
     Active Substance: TEDUGLUTIDE
     Dosage: 1.9 MILLIGRAM, QD
     Route: 058
     Dates: start: 20210723
  16. TEDUGLUTIDE [Suspect]
     Active Substance: TEDUGLUTIDE
     Dosage: 1.9 MILLIGRAM, QD
     Route: 058
     Dates: start: 20210723

REACTIONS (13)
  - Death [Fatal]
  - COVID-19 pneumonia [Unknown]
  - Stoma complication [Unknown]
  - Blood calcium decreased [Unknown]
  - Blood iron decreased [Unknown]
  - Haemoglobin decreased [Unknown]
  - Weight decreased [Unknown]
  - Peripheral swelling [Unknown]
  - Blood creatine abnormal [Unknown]
  - Injection site bruising [Unknown]
  - Abdominal distension [Unknown]
  - Injection site pain [Unknown]
  - Off label use [Unknown]

NARRATIVE: CASE EVENT DATE: 20220123
